FAERS Safety Report 9474920 (Version 1)
Quarter: 2013Q3

REPORT INFORMATION
  Report Type: Spontaneous
  Country: US (occurrence: US)
  Receive Date: 20130823
  Receipt Date: 20130823
  Transmission Date: 20140515
  Serious: No
  Sender: FDA-Public Use
  Company Number: US-009507513-1308USA010834

PATIENT
  Sex: Female

DRUGS (2)
  1. CLARITIN [Suspect]
     Indication: PRURITUS
     Dosage: 20 MG, UNKNOWN
     Route: 048
     Dates: start: 201308
  2. CLARITIN [Suspect]
     Indication: MEDICAL OBSERVATION

REACTIONS (2)
  - Accidental overdose [Unknown]
  - Off label use [Unknown]
